FAERS Safety Report 6424664-6 (Version None)
Quarter: 2009Q4

REPORT INFORMATION
  Report Type: 
  Country: None (occurrence: None)
  Receive Date: 20091103
  Receipt Date: 20091021
  Transmission Date: 20100525
  Serious: Yes (Hospitalization)
  Sender: FDA-Public Use
  Company Number: PHHY2009FR45955

PATIENT
  Age: 70 Year
  Sex: Male

DRUGS (3)
  1. EXJADE [Suspect]
     Dosage: 1500 MG DAILY
     Route: 048
     Dates: start: 20080224, end: 20080302
  2. ACEBUTOLOL [Concomitant]
     Dosage: UNK
  3. GRANOCYTE [Concomitant]
     Dosage: UNK

REACTIONS (6)
  - DECREASED APPETITE [None]
  - DIARRHOEA [None]
  - OEDEMA PERIPHERAL [None]
  - PETECHIAE [None]
  - PYREXIA [None]
  - RASH MACULO-PAPULAR [None]
